FAERS Safety Report 17252388 (Version 1)
Quarter: 2020Q1

REPORT INFORMATION
  Report Type: Spontaneous
  Country: US (occurrence: US)
  Receive Date: 20200109
  Receipt Date: 20200109
  Transmission Date: 20200409
  Serious: No
  Sender: FDA-Public Use
  Company Number: US-PFIZER INC-2020009375

PATIENT
  Age: 77 Year
  Sex: Female
  Weight: 68.93 kg

DRUGS (1)
  1. IBRANCE [Suspect]
     Active Substance: PALBOCICLIB
     Indication: BREAST CANCER
     Dosage: 125 MG, CYCLIC (ON DAYS 1 THROUGH 21)
     Route: 048
     Dates: start: 20181120

REACTIONS (2)
  - Product dose omission [Unknown]
  - White blood cell count decreased [Unknown]
